FAERS Safety Report 5145142-0 (Version None)
Quarter: 2006Q4

REPORT INFORMATION
  Report Type: 
  Country: None (occurrence: None)
  Receive Date: 20061107
  Receipt Date: 20061025
  Transmission Date: 20070319
  Serious: Yes (Death)
  Sender: FDA-Public Use
  Company Number: IN-ELI_LILLY_AND_COMPANY-IN200610004334

PATIENT
  Age: 60 Year
  Sex: Female

DRUGS (3)
  1. FORTEO [Suspect]
     Indication: OSTEOPOROSIS
     Dosage: 20 MCG, DAILY (1/D)
     Route: 058
     Dates: start: 20061015
  2. CORTICOSTEROIDS [Concomitant]
     Indication: INTERSTITIAL LUNG DISEASE
     Dosage: UNK, UNKNOWN
     Route: 065
  3. CALCIUM WITH VITAMIN D [Concomitant]
     Dosage: 1000 MG, DAILY (1/D)
     Route: 048

REACTIONS (1)
  - DEATH [None]
